FAERS Safety Report 8052598-2 (Version None)
Quarter: 2012Q1

REPORT INFORMATION
  Report Type: 
  Country: None (occurrence: None)
  Receive Date: 20120118
  Receipt Date: 20120109
  Transmission Date: 20120608
  Serious: Yes (Other)
  Sender: FDA-Public Use
  Company Number: US-BAYER-2010-000832

PATIENT
  Sex: Female
  Weight: 95 kg

DRUGS (9)
  1. DROSPIRENONE AND ETHINYL ESTRADIOL [Suspect]
     Dosage: UNK
     Dates: start: 20050101, end: 20090101
  2. YASMIN [Suspect]
     Dosage: UNK
     Dates: start: 20050101, end: 20090101
  3. DROSPIRENONE AND ETHINYL ESTRADIOL [Suspect]
     Dosage: UNK
     Dates: start: 20050101, end: 20090101
  4. YASMIN [Suspect]
     Dosage: UNK
     Dates: start: 20050101, end: 20090101
  5. DROSPIRENONE AND ETHINYL ESTRADIOL [Suspect]
     Dosage: UNK
     Dates: start: 20050101, end: 20090101
  6. ECHINACEA [Concomitant]
     Dosage: UNK
     Dates: start: 20050101
  7. YASMIN [Suspect]
     Dosage: UNK
     Dates: start: 20050101, end: 20090101
  8. YASMIN [Suspect]
     Dosage: UNK
     Dates: start: 20050101, end: 20090101
  9. DROSPIRENONE AND ETHINYL ESTRADIOL [Suspect]
     Dosage: UNK
     Dates: start: 20050101, end: 20090101

REACTIONS (7)
  - HEPATIC FUNCTION ABNORMAL [None]
  - EMOTIONAL DISTRESS [None]
  - LIVER INJURY [None]
  - BLOOD CHOLESTEROL INCREASED [None]
  - HEPATIC STEATOSIS [None]
  - GALLBLADDER POLYP [None]
  - GALLBLADDER DISORDER [None]
